FAERS Safety Report 8229603-3 (Version None)
Quarter: 2012Q1

REPORT INFORMATION
  Report Type: 
  Country: None (occurrence: None)
  Receive Date: 20120322
  Receipt Date: 20120315
  Transmission Date: 20120608
  Serious: Yes (Other)
  Sender: FDA-Public Use
  Company Number: PHHY2012MX014378

PATIENT
  Sex: Male

DRUGS (2)
  1. ONBREZ [Suspect]
     Indication: ASTHMA
     Dosage: 300 UG, QD
  2. SPIRIVA [Concomitant]
     Indication: LUNG DISORDER

REACTIONS (5)
  - TACHYCARDIA [None]
  - RENAL FAILURE CHRONIC [None]
  - DIARRHOEA [None]
  - HYPERTENSION [None]
  - HEADACHE [None]
